FAERS Safety Report 11728889 (Version 1)
Quarter: 2015Q4

REPORT INFORMATION
  Report Type: Spontaneous
  Country: SE (occurrence: SE)
  Receive Date: 20151112
  Receipt Date: 20151112
  Transmission Date: 20160304
  Serious: Yes (Hospitalization)
  Sender: FDA-Public Use
  Company Number: SE-SHIRE-SE201513716

PATIENT
  Age: 50 Year
  Sex: Female

DRUGS (3)
  1. CINRYZE [Suspect]
     Active Substance: HUMAN C1-ESTERASE INHIBITOR
     Indication: HEREDITARY ANGIOEDEMA
     Dosage: 1500 UNITS, OTHER (WEEKLY DOSE #1)
     Route: 042
     Dates: start: 201510
  2. CINRYZE [Suspect]
     Active Substance: HUMAN C1-ESTERASE INHIBITOR
     Indication: PROPHYLAXIS
     Dosage: 1000 UNITS, OTHER (2 TIMES WEEKLY)
     Route: 042
     Dates: start: 201509, end: 201510
  3. CINRYZE [Suspect]
     Active Substance: HUMAN C1-ESTERASE INHIBITOR
     Dosage: 1000 UNITS, OTHER (3 TIMES WEEKLY)
     Route: 042
     Dates: start: 201510, end: 201510

REACTIONS (5)
  - Infusion related reaction [Unknown]
  - Prescribed overdose [Unknown]
  - Swelling face [Unknown]
  - Local swelling [Unknown]
  - Inappropriate schedule of drug administration [Recovered/Resolved]

NARRATIVE: CASE EVENT DATE: 201510
